FAERS Safety Report 11659059 (Version 1)
Quarter: 2015Q4

REPORT INFORMATION
  Report Type: Spontaneous
  Country: None (occurrence: None)
  Receive Date: 20151023
  Receipt Date: 20151023
  Transmission Date: 20160304
  Serious: Yes (Other)
  Sender: FDA-Public Use
  Company Number: None

PATIENT
  Age: 16 Year
  Sex: Male
  Weight: 86.18 kg

DRUGS (1)
  1. GENERIC KEPPRA [Suspect]
     Active Substance: LEVETIRACETAM
     Indication: SEIZURE
     Dosage: KEPPRA 500 MG 2 PO QD ORAL
     Route: 048
     Dates: start: 20071113

REACTIONS (2)
  - Nausea [None]
  - Mood swings [None]

NARRATIVE: CASE EVENT DATE: 20071113
